FAERS Safety Report 12937377 (Version 1)
Quarter: 2016Q4

REPORT INFORMATION
  Report Type: Spontaneous
  Country: US (occurrence: US)
  Receive Date: 20161114
  Receipt Date: 20161114
  Transmission Date: 20170207
  Serious: Yes (Death)
  Sender: FDA-Public Use
  Company Number: US-SAGENTPRD-2016-US-000050

PATIENT
  Age: 5 Month
  Sex: 0

DRUGS (15)
  1. METHOTREXATE. [Concomitant]
     Active Substance: METHOTREXATE
  2. CYTARABINE. [Concomitant]
     Active Substance: CYTARABINE
  3. FILGRASTIM [Concomitant]
     Active Substance: FILGRASTIM
  4. ETOPOSIDE. [Concomitant]
     Active Substance: ETOPOSIDE
  5. PEGASPARGASE [Concomitant]
     Active Substance: PEGASPARGASE
  6. METHYLPREDNISOLONE. [Concomitant]
     Active Substance: METHYLPREDNISOLONE
  7. DEXAMETHASONE. [Concomitant]
     Active Substance: DEXAMETHASONE
  8. MERCAPTOPURINE. [Concomitant]
     Active Substance: MERCAPTOPURINE
  9. CYCLOPHOSPHAMIDE. [Concomitant]
     Active Substance: CYCLOPHOSPHAMIDE
  10. ASPARAGINASE [Concomitant]
     Active Substance: ASPARAGINASE
  11. LEUCOVORIN CALCIUM FOR INJECTION [Suspect]
     Active Substance: LEUCOVORIN CALCIUM
     Dosage: UNKNOWN
  12. HYDROCORTISONE. [Concomitant]
     Active Substance: HYDROCORTISONE
  13. VINCRISTINE [Concomitant]
     Active Substance: VINCRISTINE
  14. DAUNORUBICIN [Concomitant]
     Active Substance: DAUNORUBICIN
  15. PREDNISONE. [Concomitant]
     Active Substance: PREDNISONE

REACTIONS (8)
  - Bacterial infection [None]
  - Aspergillus infection [Fatal]
  - Lymphatic disorder [Fatal]
  - Cystitis [None]
  - Clostridium difficile colitis [None]
  - Secondary immunodeficiency [None]
  - Thymus disorder [Fatal]
  - Cytomegalovirus viraemia [None]
